FAERS Safety Report 23074702 (Version 3)
Quarter: 2023Q4

REPORT INFORMATION
  Report Type: Report from Study
  Country: BG (occurrence: BG)
  Receive Date: 20231017
  Receipt Date: 20231124
  Transmission Date: 20240109
  Serious: Yes (Death, Other)
  Sender: FDA-Public Use
  Company Number: BG-BoehringerIngelheim-2023-BI-267312

PATIENT

DRUGS (2)
  1. SYNJARDY [Suspect]
     Active Substance: EMPAGLIFLOZIN\METFORMIN HYDROCHLORIDE
     Indication: Type 2 diabetes mellitus
  2. METFORMIN [Concomitant]
     Active Substance: METFORMIN HYDROCHLORIDE
     Indication: Type 2 diabetes mellitus

REACTIONS (8)
  - C-reactive protein increased [Fatal]
  - Myocardial infarction [Fatal]
  - Insulin resistance [Fatal]
  - Glycosylated haemoglobin increased [Fatal]
  - Blood glucose increased [Fatal]
  - Autonomic neuropathy [Fatal]
  - Autonomic nervous system imbalance [Fatal]
  - Laboratory test abnormal [Fatal]
